FAERS Safety Report 4698228-9 (Version None)
Quarter: 2005Q2

REPORT INFORMATION
  Report Type: 
  Country: None (occurrence: None)
  Receive Date: 20050623
  Receipt Date: 20050613
  Transmission Date: 20051028
  Serious: Yes (Hospitalization, Other)
  Sender: FDA-Public Use
  Company Number: US-BRISTOL-MYERS SQUIBB COMPANY-13000997

PATIENT
  Age: 52 Year
  Sex: Male

DRUGS (4)
  1. ABILIFY [Suspect]
     Indication: BIPOLAR DISORDER
     Dosage: DOSAGE INCREASED TO 10 MG ONE TABLET ONCE A DAY AROUND APR-05.
     Dates: start: 20050201, end: 20050413
  2. LITHIUM [Concomitant]
  3. MULTI-VITAMIN [Concomitant]
  4. LAXATIVES [Concomitant]

REACTIONS (8)
  - AGGRESSION [None]
  - AGITATION [None]
  - ASTHENIA [None]
  - BLOOD CREATINE PHOSPHOKINASE INCREASED [None]
  - BODY TEMPERATURE INCREASED [None]
  - DYSKINESIA [None]
  - FALL [None]
  - MOVEMENT DISORDER [None]
